FAERS Safety Report 7221265-7 (Version None)
Quarter: 2011Q1

REPORT INFORMATION
  Report Type: 
  Country: None (occurrence: None)
  Receive Date: 20110112
  Receipt Date: 20110103
  Transmission Date: 20110831
  Serious: Yes (Other)
  Sender: FDA-Public Use
  Company Number: PHHY2011HU00821

PATIENT
  Sex: Female

DRUGS (3)
  1. BETALOC [Concomitant]
     Dates: start: 20040101
  2. ACLASTA [Suspect]
     Indication: OSTEOPOROSIS
     Dates: start: 20100109
  3. TRITACE [Concomitant]
     Dates: start: 20040101

REACTIONS (5)
  - MYALGIA [None]
  - ARTHRALGIA [None]
  - MOVEMENT DISORDER [None]
  - MUSCULAR WEAKNESS [None]
  - PYREXIA [None]
